FAERS Safety Report 4640381-7 (Version None)
Quarter: 2005Q2

REPORT INFORMATION
  Report Type: 
  Country: None (occurrence: None)
  Receive Date: 20050420
  Receipt Date: 20040706
  Transmission Date: 20051028
  Serious: Yes (Disabling)
  Sender: FDA-Public Use
  Company Number: SE-GLAXOSMITHKLINE-B0339487B

PATIENT
  Age: 29 Year
  Sex: Male

DRUGS (2)
  1. DERMOVATE [Suspect]
     Indication: PSORIASIS
     Route: 065
     Dates: start: 19770101
  2. BETNOVAT [Concomitant]
     Indication: PSORIASIS
     Route: 065

REACTIONS (2)
  - BLINDNESS UNILATERAL [None]
  - GLAUCOMA [None]
